FAERS Safety Report 6243203-6 (Version None)
Quarter: 2009Q2

REPORT INFORMATION
  Report Type: 
  Country: None (occurrence: None)
  Receive Date: 20090622
  Receipt Date: 20090609
  Transmission Date: 20091009
  Serious: Yes (Congenital Anomaly)
  Sender: FDA-Public Use
  Company Number: B0579018A

PATIENT

DRUGS (5)
  1. LAMOTRIGINE [Suspect]
     Indication: EPILEPSY
     Dosage: TRANSPLACENTARY
     Route: 064
  2. VALPROATE SODIUM [Suspect]
     Indication: EPILEPSY
     Dosage: TRANSPLACENTARY
     Route: 064
  3. LEVETIRACETAM [Suspect]
     Indication: EPILEPSY
     Dosage: TRANSPLACENTARY
     Route: 064
  4. CLOBAZAM (FORMULATION UNKNOWN) (CLOBAZAM) [Suspect]
     Indication: EPILEPSY
     Dosage: 10 MG / TRANSPLACENTARY
     Route: 064
  5. FOLIC ACID [Suspect]
     Dosage: 5 MG / TRANSPLACENTARY
     Route: 064

REACTIONS (3)
  - ANORECTAL DISORDER [None]
  - MATERNAL DRUGS AFFECTING FOETUS [None]
  - SPINA BIFIDA [None]
